FAERS Safety Report 8925370 (Version 2)
Quarter: 2012Q4

REPORT INFORMATION
  Report Type: 
  Country: US (occurrence: US)
  Receive Date: 20121126
  Receipt Date: 20121130
  Transmission Date: 20130627
  Serious: No
  Sender: FDA-Public Use
  Company Number: US-009507513-1211USA008622

PATIENT
  Sex: Female
  Weight: 72.11 kg

DRUGS (3)
  1. CLARITIN-D 12 HOUR [Suspect]
     Indication: HYPERSENSITIVITY
     Dosage: 5 mg, Once
     Route: 048
     Dates: start: 20120924, end: 20120924
  2. CLARITIN-D 12 HOUR [Suspect]
     Indication: MEDICAL OBSERVATION
  3. SIMVASTATIN [Concomitant]
     Indication: BLOOD CHOLESTEROL INCREASED
     Dosage: UNK, Unknown
     Route: 048

REACTIONS (1)
  - Expired drug administered [Unknown]
